FAERS Safety Report 8144209-2 (Version None)
Quarter: 2012Q1

REPORT INFORMATION
  Report Type: 
  Country: None (occurrence: None)
  Receive Date: 20120217
  Receipt Date: 20120215
  Transmission Date: 20120608
  Serious: Yes (Other)
  Sender: FDA-Public Use
  Company Number: US-PFIZER INC-2011042734

PATIENT
  Sex: Male

DRUGS (2)
  1. MORPHINE SULFATE [Suspect]
     Indication: PAIN
  2. XANAX [Concomitant]
     Indication: ANXIETY
     Dosage: UNK

REACTIONS (4)
  - WEIGHT INCREASED [None]
  - MICTURITION DISORDER [None]
  - CONSTIPATION [None]
  - DEPRESSION [None]
